FAERS Safety Report 21840660 (Version 1)
Quarter: 2023Q1

REPORT INFORMATION
  Report Type: Spontaneous
  Country: ES (occurrence: ES)
  Receive Date: 20230110
  Receipt Date: 20230110
  Transmission Date: 20230417
  Serious: Yes (Death, Hospitalization, Other)
  Sender: FDA-Public Use
  Company Number: None

PATIENT
  Age: 80 Year
  Sex: Female

DRUGS (14)
  1. JENTADUETO [Suspect]
     Active Substance: LINAGLIPTIN\METFORMIN HYDROCHLORIDE
     Indication: Diabetes mellitus
     Dosage: 1 TABLET , STRENGTH: 2.5 MG/ 80 MG
     Route: 048
     Dates: start: 20180323, end: 20221228
  2. Pitavastatina 1 mg 28 comprimidos [Concomitant]
     Indication: Product used for unknown indication
  3. FUROSEMIDE [Concomitant]
     Active Substance: FUROSEMIDE
     Indication: Product used for unknown indication
  4. LOSARTAN [Concomitant]
     Active Substance: LOSARTAN
     Indication: Product used for unknown indication
  5. GABAPENTIN [Concomitant]
     Active Substance: GABAPENTIN
     Indication: Product used for unknown indication
  6. CALCIFEDIOL [Concomitant]
     Active Substance: CALCIFEDIOL
     Indication: Product used for unknown indication
  7. APIXABAN [Concomitant]
     Active Substance: APIXABAN
     Indication: Product used for unknown indication
  8. CARRELDON RETARD 240 mg COMPRIMIDOS DE LIBERACION PROLONGADA [Concomitant]
     Indication: Product used for unknown indication
  9. CLONAZEPAM [Concomitant]
     Active Substance: CLONAZEPAM
     Indication: Product used for unknown indication
  10. PARACETAMOL(12A) [Concomitant]
     Indication: Product used for unknown indication
  11. omeprazol, 20 mg, c?psula de liberaci?n modificada [Concomitant]
     Indication: Product used for unknown indication
  12. PROVISACOR 5 mg COMPRIMIDOS RECUBIERTOS CON PELICULA [Concomitant]
     Indication: Product used for unknown indication
  13. Espironolactona 25 mg 20 comprimidos [Concomitant]
     Indication: Product used for unknown indication
  14. BISOPROLOL [Concomitant]
     Active Substance: BISOPROLOL
     Indication: Product used for unknown indication

REACTIONS (1)
  - Lactic acidosis [Fatal]

NARRATIVE: CASE EVENT DATE: 20221228
